FAERS Safety Report 20689680 (Version 1)
Quarter: 2022Q2

REPORT INFORMATION
  Report Type: Spontaneous
  Country: US (occurrence: None)
  Receive Date: 20220407
  Receipt Date: 20220407
  Transmission Date: 20220721
  Serious: No
  Sender: FDA-Public Use
  Company Number: None

PATIENT
  Age: 51 Year
  Sex: Male

DRUGS (2)
  1. ANASTROZOLE [Suspect]
     Active Substance: ANASTROZOLE
     Indication: Hormone replacement therapy
     Dosage: OTHER FREQUENCY : TWICE WEEKLY;?
     Route: 058
     Dates: start: 20170426
  2. Clomiphene 50mg [Concomitant]
     Dates: start: 20210929

REACTIONS (4)
  - Injection site reaction [None]
  - Sensitive skin [None]
  - Pain of skin [None]
  - Recalled product administered [None]

NARRATIVE: CASE EVENT DATE: 20220201
